FAERS Safety Report 5410846-9 (Version None)
Quarter: 2007Q3

REPORT INFORMATION
  Report Type: 
  Country: None (occurrence: None)
  Receive Date: 20070810
  Receipt Date: 20070803
  Transmission Date: 20080115
  Serious: Yes (Other)
  Sender: FDA-Public Use
  Company Number: US-JNJFOC-20070801249

PATIENT
  Sex: Female
  Weight: 131.54 kg

DRUGS (4)
  1. FENTANYL TRANSDERMAL SYSTEM [Suspect]
     Route: 062
  2. FENTANYL TRANSDERMAL SYSTEM [Suspect]
     Indication: PAIN
     Route: 062
  3. UNKNOWN DIABETES MEDICATION [Concomitant]
     Route: 065
  4. HEART MEDICATION [Concomitant]
     Route: 065

REACTIONS (5)
  - BLOOD PRESSURE DECREASED [None]
  - GASTROENTERITIS [None]
  - MEMORY IMPAIRMENT [None]
  - ULCER [None]
  - WEIGHT DECREASED [None]
